FAERS Safety Report 10288259 (Version 1)
Quarter: 2014Q3

REPORT INFORMATION
  Report Type: Spontaneous
  Country: US (occurrence: US)
  Receive Date: 20140709
  Receipt Date: 20140709
  Transmission Date: 20150326
  Serious: Yes (Other)
  Sender: FDA-Public Use
  Company Number: US-UCBSA-2014003946

PATIENT
  Age: 0 Year
  Weight: 3.58 kg

DRUGS (12)
  1. HUMIRA [Concomitant]
     Active Substance: ADALIMUMAB
     Indication: CROHN^S DISEASE
     Dosage: 40 MG, 1 WEEKLY (QW)
     Route: 064
     Dates: start: 20130824, end: 20131001
  2. PEPTO-BISMOL [Concomitant]
     Active Substance: BISMUTH SUBSALICYLATE\CALCIUM CARBONATE
     Indication: ABDOMINAL DISCOMFORT
     Dosage: 12 UNK, UNK
     Route: 064
     Dates: start: 20131217, end: 20131217
  3. FLU VAX [Concomitant]
  4. DHA [Concomitant]
     Dosage: UNK
     Route: 064
     Dates: start: 2008
  5. VALTREX [Concomitant]
     Active Substance: VALACYCLOVIR HYDROCHLORIDE
     Indication: PROPHYLAXIS
     Dosage: 500 MG, ONCE DAILY (QD)
     Route: 064
     Dates: start: 20140424, end: 20140526
  6. PRENATAL VITAMINS [Concomitant]
     Active Substance: VITAMINS
     Dosage: 1 PILL ONCE DAILY (QD)
     Route: 064
     Dates: start: 20130824, end: 20140526
  7. VITAMIN B12 [Concomitant]
     Active Substance: CYANOCOBALAMIN
     Indication: CROHN^S DISEASE
     Dosage: 2500 ?G, ONCE DAILY (QD)
     Route: 064
     Dates: start: 20130824, end: 20140526
  8. CIMZIA [Suspect]
     Active Substance: CERTOLIZUMAB PEGOL
     Indication: CROHN^S DISEASE
     Dosage: 400 MG, 2X/MONTH
     Route: 064
     Dates: start: 20131029, end: 20131126
  9. CIMZIA [Suspect]
     Active Substance: CERTOLIZUMAB PEGOL
     Dosage: 400 MG, MONTHLY (QM)
     Route: 064
     Dates: start: 20131224, end: 20140526
  10. DHA [Concomitant]
     Dosage: UNK, ONCE DAILY (QD)
     Route: 048
     Dates: start: 20130824, end: 20140526
  11. TYLENOL [Concomitant]
     Active Substance: ACETAMINOPHEN
     Indication: HEADACHE
     Dosage: 1000 MG, ONCE DAILY (QD)
     Route: 064
     Dates: start: 20130927, end: 20130927
  12. CALCIUM [Concomitant]
     Active Substance: CALCIUM
     Indication: OSTEOPOROSIS
     Dosage: 500 MG, ONCE DAILY (QD)
     Route: 064
     Dates: start: 20130824, end: 20140526

REACTIONS (2)
  - Spherocytic anaemia [Unknown]
  - Foetal exposure during pregnancy [Unknown]

NARRATIVE: CASE EVENT DATE: 20131029
